FAERS Safety Report 20187342 (Version 1)
Quarter: 2021Q4

REPORT INFORMATION
  Report Type: Spontaneous
  Country: US (occurrence: None)
  Receive Date: 20211215
  Receipt Date: 20211215
  Transmission Date: 20220303
  Serious: Yes (Hospitalization, Other)
  Sender: FDA-Public Use
  Company Number: US-MLMSERVICE-20211125-3237821-2

PATIENT
  Age: 56 Year
  Sex: Male

DRUGS (1)
  1. TESTOSTERONE [Suspect]
     Active Substance: TESTOSTERONE
     Indication: Hypogonadism male
     Dosage: UNKNOWN
     Route: 065

REACTIONS (6)
  - Metastases to peritoneum [Unknown]
  - Sepsis [Unknown]
  - Renal failure [Unknown]
  - Metastasis [Unknown]
  - Ascites [Unknown]
  - Cholangiocarcinoma [Unknown]
